FAERS Safety Report 5933034-6 (Version None)
Quarter: 2008Q4

REPORT INFORMATION
  Report Type: 
  Country: None (occurrence: None)
  Receive Date: 20081028
  Receipt Date: 20081023
  Transmission Date: 20090506
  Serious: Yes (Death, Hospitalization, Other)
  Sender: FDA-Public Use
  Company Number: IN-BRISTOL-MYERS SQUIBB COMPANY-14373807

PATIENT
  Age: 43 Year
  Sex: Male

DRUGS (9)
  1. IPILIMUMAB [Suspect]
     Indication: LUNG NEOPLASM MALIGNANT
     Route: 042
     Dates: start: 20081016, end: 20081016
  2. CARBOPLATIN [Suspect]
     Indication: LUNG NEOPLASM MALIGNANT
     Route: 042
     Dates: start: 20081016, end: 20081016
  3. TAXOL [Suspect]
     Indication: LUNG NEOPLASM MALIGNANT
     Route: 042
     Dates: start: 20081016, end: 20081016
  4. PLACEBO [Suspect]
     Indication: LUNG NEOPLASM MALIGNANT
     Route: 042
     Dates: start: 20081016, end: 20081016
  5. DEXONA [Suspect]
     Route: 042
     Dates: start: 20081016, end: 20081016
  6. PANTOPRAZOLE SODIUM [Suspect]
     Route: 042
     Dates: start: 20081016, end: 20081016
  7. PALONOSETRON [Concomitant]
     Route: 042
     Dates: start: 20081016, end: 20081016
  8. ATENOLOL [Concomitant]
     Dosage: TAKEN 50MG
  9. AVIL [Concomitant]
     Route: 042
     Dates: start: 20081016, end: 20081016

REACTIONS (3)
  - SEPSIS [None]
  - SKIN EXFOLIATION [None]
  - TOXIC EPIDERMAL NECROLYSIS [None]
